FAERS Safety Report 13060101 (Version 1)
Quarter: 2016Q4

REPORT INFORMATION
  Report Type: Spontaneous
  Country: CA (occurrence: CA)
  Receive Date: 20161223
  Receipt Date: 20161223
  Transmission Date: 20170207
  Serious: Yes (Death, Other)
  Sender: FDA-Public Use
  Company Number: CA-IMPAX LABORATORIES, INC-2016-IPXL-02395

PATIENT
  Age: 71 Year
  Sex: Male

DRUGS (2)
  1. ITRACONAZOLE. [Interacting]
     Active Substance: ITRACONAZOLE
     Indication: BRONCHOPULMONARY ASPERGILLOSIS
     Dosage: UNK
     Route: 065
  2. BUDESONIDE. [Suspect]
     Active Substance: BUDESONIDE
     Indication: CHRONIC OBSTRUCTIVE PULMONARY DISEASE
     Dosage: UNK
     Route: 050

REACTIONS (3)
  - Drug interaction [Fatal]
  - Cushing^s syndrome [Fatal]
  - Myocardial infarction [Fatal]
